FAERS Safety Report 6078368-2 (Version None)
Quarter: 2009Q1

REPORT INFORMATION
  Report Type: 
  Country: None (occurrence: None)
  Receive Date: 20090213
  Receipt Date: 20090205
  Transmission Date: 20090719
  Serious: Yes (Other)
  Sender: FDA-Public Use
  Company Number: GB-GILEAD-2009-0019991

PATIENT
  Sex: Male
  Weight: 98.4 kg

DRUGS (4)
  1. VIREAD [Suspect]
     Indication: HIV INFECTION
     Dates: start: 20031201, end: 20081105
  2. LAMIVUDINE [Concomitant]
  3. EFAVIRENZ [Concomitant]
  4. CALCICHEW [Concomitant]
     Dates: start: 20080701, end: 20081001

REACTIONS (1)
  - VIRAL LOAD INCREASED [None]
